FAERS Safety Report 4967129-0 (Version None)
Quarter: 2006Q2

REPORT INFORMATION
  Report Type: 
  Country: None (occurrence: None)
  Receive Date: 20060404
  Receipt Date: 20060322
  Transmission Date: 20061013
  Serious: Yes (Death)
  Sender: FDA-Public Use
  Company Number: 223407

PATIENT
  Age: 21 Year
  Sex: Male

DRUGS (4)
  1. RITUXAN [Suspect]
     Indication: B-CELL LYMPHOMA
     Dates: start: 20030701, end: 20030901
  2. CYCLOPHOSPHAMIDE [Concomitant]
  3. DOXORUBICIN HCL [Concomitant]
  4. PREDNISONE TAB [Concomitant]

REACTIONS (5)
  - BLOOD IMMUNOGLOBULIN M DECREASED [None]
  - COMA [None]
  - HEPATIC FAILURE [None]
  - HEPATITIS B [None]
  - PNEUMONIA RESPIRATORY SYNCYTIAL VIRAL [None]
